FAERS Safety Report 6620311-9 (Version None)
Quarter: 2010Q1

REPORT INFORMATION
  Report Type: 
  Country: None (occurrence: None)
  Receive Date: 20100308
  Receipt Date: 20100308
  Transmission Date: 20100710
  Serious: Yes (Hospitalization)
  Sender: FDA-Public Use
  Company Number: None

PATIENT
  Age: 62 Year
  Sex: Female
  Weight: 93.1 kg

DRUGS (15)
  1. ABRAXANE [Suspect]
     Indication: HEAD AND NECK CANCER
     Dosage: 40 MG/M2 WEEKLY IV
     Route: 042
     Dates: start: 20100112, end: 20100222
  2. CARBOPLATIN [Suspect]
     Indication: HEAD AND NECK CANCER
     Dosage: AUC 1.5 WEEKLY IV
     Route: 042
     Dates: start: 20100112, end: 20100222
  3. ALKALOL [Concomitant]
  4. CITALOPRAM HYDROBROMIDE [Concomitant]
  5. COLACE [Concomitant]
  6. DIFLUCAN [Concomitant]
  7. FENTANYL [Concomitant]
  8. IBUPROFEN [Concomitant]
  9. MBL [Concomitant]
  10. MILK OF MAGNESIA TAB [Concomitant]
  11. MYLANTA [Concomitant]
  12. OXYCODONE [Concomitant]
  13. REGLAN [Concomitant]
  14. SENOKOT [Concomitant]
  15. ZANTAC [Concomitant]

REACTIONS (7)
  - CONFUSIONAL STATE [None]
  - DEHYDRATION [None]
  - FAILURE TO THRIVE [None]
  - MUCOSAL INFLAMMATION [None]
  - PAIN [None]
  - SALIVARY HYPERSECRETION [None]
  - UNEVALUABLE EVENT [None]
